FAERS Safety Report 22635740 (Version 1)
Quarter: 2023Q2

REPORT INFORMATION
  Report Type: Spontaneous
  Country: CN (occurrence: None)
  Receive Date: 20230623
  Receipt Date: 20230623
  Transmission Date: 20230721
  Serious: Yes (Hospitalization, Other)
  Sender: FDA-Public Use
  Company Number: 2023A129660

PATIENT
  Age: 70 Year
  Sex: Male
  Weight: 69 kg

DRUGS (10)
  1. IMFINZI [Suspect]
     Active Substance: DURVALUMAB
     Indication: Small cell lung cancer extensive stage
     Dosage: 1500.0MG EVERY CYCLE
     Route: 042
     Dates: start: 20220715, end: 20220715
  2. IMFINZI [Suspect]
     Active Substance: DURVALUMAB
     Indication: Small cell lung cancer extensive stage
     Dosage: 1500.0MG EVERY CYCLE
     Route: 042
  3. IMFINZI [Suspect]
     Active Substance: DURVALUMAB
     Indication: Small cell lung cancer extensive stage
     Dosage: 1500.0MG EVERY CYCLE
     Route: 042
  4. IMFINZI [Suspect]
     Active Substance: DURVALUMAB
     Indication: Small cell lung cancer extensive stage
     Dosage: 1500.0MG EVERY CYCLE
     Route: 042
  5. IMFINZI [Suspect]
     Active Substance: DURVALUMAB
     Indication: Small cell lung cancer extensive stage
     Dosage: 1500.0MG EVERY CYCLE
     Route: 042
  6. IMFINZI [Suspect]
     Active Substance: DURVALUMAB
     Indication: Small cell lung cancer extensive stage
     Dosage: 1500.0MG EVERY CYCLE
     Route: 042
  7. IMFINZI [Suspect]
     Active Substance: DURVALUMAB
     Indication: Small cell lung cancer extensive stage
     Dosage: 1500.0MG EVERY CYCLE
     Route: 042
  8. IMFINZI [Suspect]
     Active Substance: DURVALUMAB
     Indication: Small cell lung cancer extensive stage
     Dosage: 1500.0MG EVERY CYCLE
     Route: 042
  9. IMFINZI [Suspect]
     Active Substance: DURVALUMAB
     Indication: Small cell lung cancer extensive stage
     Dosage: 1500.0MG EVERY CYCLE
     Route: 042
     Dates: start: 20230321, end: 20230321
  10. ETOPOSIDE [Concomitant]
     Active Substance: ETOPOSIDE
     Dosage: AS FIRST-LINE THERAPY UNKNOWN

REACTIONS (3)
  - Platelet count decreased [Not Recovered/Not Resolved]
  - Haemoptysis [Recovered/Resolved]
  - Neoplasm progression [Unknown]

NARRATIVE: CASE EVENT DATE: 20230401
